FAERS Safety Report 5088414-0 (Version None)
Quarter: 2006Q3

REPORT INFORMATION
  Report Type: 
  Country: None (occurrence: None)
  Receive Date: 20060821
  Receipt Date: 20060811
  Transmission Date: 20061208
  Serious: Yes (Hospitalization)
  Sender: FDA-Public Use
  Company Number: 235183K06USA

PATIENT
  Age: 44 Year
  Sex: Female

DRUGS (1)
  1. REBIF [Suspect]
     Indication: MULTIPLE SCLEROSIS
     Dosage: 44 MCG, 3 IN 1 WEEKS, 1 SUBCUTANEOUS
     Route: 058
     Dates: start: 20040303

REACTIONS (3)
  - CONVULSION [None]
  - FATIGUE [None]
  - WEIGHT DECREASED [None]
